FAERS Safety Report 10152936 (Version 1)
Quarter: 2014Q2

REPORT INFORMATION
  Report Type: Spontaneous
  Country: FR (occurrence: FR)
  Receive Date: 20140505
  Receipt Date: 20140505
  Transmission Date: 20141212
  Serious: Yes (Hospitalization)
  Sender: FDA-Public Use
  Company Number: FR-GLAXOSMITHKLINE-B0990601A

PATIENT
  Age: 46 Year
  Sex: Female

DRUGS (8)
  1. SORIATANE [Suspect]
     Indication: PSORIASIS
     Dosage: 50MG PER DAY
     Route: 048
     Dates: start: 20140201, end: 20140404
  2. CERAZETTE [Suspect]
     Indication: ORAL CONTRACEPTION
     Dosage: 75UG PER DAY
     Route: 048
     Dates: start: 20140201, end: 20140404
  3. CELLCEPT [Concomitant]
     Dosage: 2000MG PER DAY
  4. LEVOTHYROX [Concomitant]
     Dosage: 150UG PER DAY
  5. CORTANCYL [Concomitant]
     Dosage: 10MG PER DAY
  6. VIT D [Concomitant]
  7. BURINEX [Concomitant]
     Dosage: 1MG PER DAY
  8. ENALAPRIL [Concomitant]

REACTIONS (1)
  - Deep vein thrombosis [Recovering/Resolving]
